FAERS Safety Report 17855728 (Version 1)
Quarter: 2020Q2

REPORT INFORMATION
  Report Type: Spontaneous
  Country: CO (occurrence: CO)
  Receive Date: 20200603
  Receipt Date: 20200603
  Transmission Date: 20200714
  Serious: Yes (Other)
  Sender: FDA-Public Use
  Company Number: CO-SUN PHARMACEUTICAL INDUSTRIES LTD-2020R1-249197

PATIENT
  Age: 18 Year
  Sex: Male

DRUGS (1)
  1. LEMATIN [Suspect]
     Active Substance: IMATINIB
     Indication: CHRONIC MYELOID LEUKAEMIA
     Dosage: 400 MILLIGRAM, DAILY
     Route: 048
     Dates: start: 20200206

REACTIONS (4)
  - Oliguria [Recovered/Resolved]
  - Anuria [Recovered/Resolved]
  - Dysuria [Recovered/Resolved]
  - Chromaturia [Recovered/Resolved]

NARRATIVE: CASE EVENT DATE: 20200513
